FAERS Safety Report 5564552-0 (Version None)
Quarter: 2007Q4

REPORT INFORMATION
  Report Type: 
  Country: None (occurrence: None)
  Receive Date: 20071218
  Receipt Date: 20071212
  Transmission Date: 20080405
  Serious: Yes (Other)
  Sender: FDA-Public Use
  Company Number: PHBS2007JP20878

PATIENT
  Age: 6 Year
  Sex: Male

DRUGS (1)
  1. CYCLOSPORINE [Suspect]
     Route: 065

REACTIONS (4)
  - BK VIRUS INFECTION [None]
  - CYTOMEGALOVIRUS ANTIGEN POSITIVE [None]
  - FEBRILE NEUTROPENIA [None]
  - STOMATITIS [None]
